FAERS Safety Report 7772068-6 (Version None)
Quarter: 2011Q3

REPORT INFORMATION
  Report Type: 
  Country: None (occurrence: None)
  Receive Date: 20110922
  Receipt Date: 20110511
  Transmission Date: 20111222
  Serious: Yes (Other)
  Sender: FDA-Public Use
  Company Number: US-ASTRAZENECA-2010SE03955

PATIENT
  Age: 17786 Day
  Sex: Female

DRUGS (15)
  1. ZYRTEC [Concomitant]
     Dates: start: 20020102
  2. OXYCONTIN [Concomitant]
     Dates: start: 20020307
  3. ALPRAZOLAM [Concomitant]
     Dates: start: 20020308
  4. KLONOPIN [Concomitant]
     Dosage: 0.5 MG TID- QID
     Dates: start: 20021001
  5. OXYCONTIN [Concomitant]
     Dates: start: 20020215
  6. NEURONTIN [Concomitant]
     Dates: start: 20010828
  7. SKELAXIN [Concomitant]
     Dates: start: 20020307
  8. SINGULAIR [Concomitant]
     Dates: start: 20010828
  9. SEROQUEL [Suspect]
     Route: 048
     Dates: start: 20020214
  10. TRAZODONE HYDROCHLORIDE [Concomitant]
     Dates: start: 20021201
  11. CELEXA [Concomitant]
     Dates: start: 20021001
  12. PROZAC [Concomitant]
     Dates: start: 20020308
  13. TRAZODONE HYDROCHLORIDE [Concomitant]
     Dates: start: 20020206
  14. ADDERALL 5 [Concomitant]
     Dates: start: 20020308
  15. SEROQUEL [Suspect]
     Route: 048
     Dates: start: 20021205

REACTIONS (2)
  - PANCREATITIS [None]
  - TYPE 2 DIABETES MELLITUS [None]
